FAERS Safety Report 17168067 (Version 1)
Quarter: 2019Q4

REPORT INFORMATION
  Report Type: Spontaneous
  Country: DK (occurrence: DK)
  Receive Date: 20191218
  Receipt Date: 20191218
  Transmission Date: 20200122
  Serious: Yes (Hospitalization, Other)
  Sender: FDA-Public Use
  Company Number: DK-AUROBINDO-AUR-APL-2019-105444

PATIENT
  Age: 78 Year
  Sex: Male

DRUGS (4)
  1. ALLOPURINOL. [Concomitant]
     Active Substance: ALLOPURINOL
     Indication: GOUT
     Dosage: 300 MILLIGRAM, ONCE A DAY(STYRKE: 300 MG.)
     Route: 048
     Dates: start: 20180316
  2. PANTOPRAZOL GASTRO-RESISTANT TABLETS 20MG [Suspect]
     Active Substance: PANTOPRAZOLE SODIUM
     Indication: GASTROOESOPHAGEAL REFLUX DISEASE
     Dosage: 40 MILLIGRAM, ONCE A DAY(STYRKE: 20 MG)
     Route: 048
     Dates: end: 20191112
  3. MOMETASONE FUROATE. [Concomitant]
     Active Substance: MOMETASONE FUROATE
     Indication: ECZEMA
     Dosage: 1 DOSAGE FORM, ONCE A DAY(STYRKE: 1%.)
     Route: 003
     Dates: start: 20190207
  4. SAMARIN [Concomitant]
     Indication: PRODUCT USED FOR UNKNOWN INDICATION
     Dosage: UNK(DOSIS: UKENDT. STYRKE: UKENDT.)
     Route: 065

REACTIONS (1)
  - Femoral neck fracture [Recovered/Resolved]

NARRATIVE: CASE EVENT DATE: 20191106
